FAERS Safety Report 23064517 (Version 11)
Quarter: 2023Q4

REPORT INFORMATION
  Report Type: Spontaneous
  Country: US (occurrence: US)
  Receive Date: 20231013
  Receipt Date: 20231227
  Transmission Date: 20240110
  Serious: No
  Sender: FDA-Public Use
  Company Number: US-PFIZER INC-PV202300168167

PATIENT
  Sex: Female

DRUGS (2)
  1. ZAVZPRET [Suspect]
     Active Substance: ZAVEGEPANT HYDROCHLORIDE
     Indication: Migraine
     Dosage: UNK
     Route: 045
  2. TYLENOL [Suspect]
     Active Substance: ACETAMINOPHEN
     Dosage: UNK

REACTIONS (15)
  - Drug ineffective [Unknown]
  - Product dose omission issue [Unknown]
  - Upper-airway cough syndrome [Unknown]
  - Dysgeusia [Unknown]
  - Fatigue [Unknown]
  - Dizziness [Not Recovered/Not Resolved]
  - Nausea [Not Recovered/Not Resolved]
  - Neck pain [Unknown]
  - Pain in jaw [Unknown]
  - Headache [Recovering/Resolving]
  - Photophobia [Unknown]
  - Hyperacusis [Unknown]
  - Loss of personal independence in daily activities [Unknown]
  - Overdose [Unknown]
  - Product administration error [Unknown]
